FAERS Safety Report 23716627 (Version 1)
Quarter: 2024Q2

REPORT INFORMATION
  Report Type: Spontaneous
  Country: GB (occurrence: GB)
  Receive Date: 20240408
  Receipt Date: 20240408
  Transmission Date: 20240716
  Serious: Yes (Hospitalization)
  Sender: FDA-Public Use
  Company Number: None

PATIENT
  Age: 79 Year

DRUGS (1)
  1. INDAPAMIDE [Suspect]
     Active Substance: INDAPAMIDE
     Route: 065

REACTIONS (1)
  - Acute kidney injury [Recovered/Resolved]
